FAERS Safety Report 11767044 (Version 1)
Quarter: 2015Q4

REPORT INFORMATION
  Report Type: Spontaneous
  Country: GB (occurrence: GB)
  Receive Date: 20151123
  Receipt Date: 20151123
  Transmission Date: 20160304
  Serious: Yes (Other)
  Sender: FDA-Public Use
  Company Number: GB-009507513-1511GBR011505

PATIENT
  Age: 68 Year
  Sex: Female
  Weight: 70 kg

DRUGS (20)
  1. LANSOPRAZOLE. [Concomitant]
     Active Substance: LANSOPRAZOLE
     Dosage: 15 MG, QD
     Dates: start: 20151002
  2. ALENDRONATE SODIUM. [Suspect]
     Active Substance: ALENDRONATE SODIUM
     Indication: BONE DISORDER
     Dosage: WEEKLY, ONLY ONE DOSE TAKEN
     Route: 065
     Dates: start: 20151019, end: 20151019
  3. BUMETANIDE. [Concomitant]
     Active Substance: BUMETANIDE
     Dosage: EACH MORNING
     Dates: start: 20151002
  4. ASPIRIN. [Concomitant]
     Active Substance: ASPIRIN
     Dosage: 75 MG, QD
     Route: 065
     Dates: start: 20151002
  5. GLICLAZIDE [Concomitant]
     Active Substance: GLICLAZIDE
     Dosage: 80 MG, BID
     Dates: start: 20151002
  6. METFORMIN [Concomitant]
     Active Substance: METFORMIN HYDROCHLORIDE
     Dosage: 1 G, BID
     Dates: start: 20151002
  7. CITALOPRAM [Concomitant]
     Active Substance: CITALOPRAM HYDROBROMIDE
     Dosage: 20 MG, QD
     Dates: start: 20151002
  8. ATENOLOL. [Concomitant]
     Active Substance: ATENOLOL
     Dosage: 25 MG, QD
     Dates: start: 20151002
  9. ATORVASTATIN [Concomitant]
     Active Substance: ATORVASTATIN
     Dosage: 20 MG, QD
     Dates: start: 20151002
  10. ACETYLCYSTEINE. [Concomitant]
     Active Substance: ACETYLCYSTEINE
     Dosage: 5%
     Route: 047
     Dates: start: 20151002
  11. NICORANDIL [Concomitant]
     Active Substance: NICORANDIL
     Dosage: 20 MG, BID
     Dates: start: 20151002
  12. TIOTROPIUM BROMIDE [Concomitant]
     Active Substance: TIOTROPIUM BROMIDE
     Dosage: AT THE SAME TIME OF DAY
     Route: 055
     Dates: start: 20151026
  13. ACETAMINOPHEN. [Concomitant]
     Active Substance: ACETAMINOPHEN
     Dosage: TAKE 1 TO 2 TABLETS MAXIMUM OF EIGHT TABLETS DAILY
     Dates: start: 20151002
  14. DERMOVATE [Concomitant]
     Active Substance: CLOBETASOL
     Dosage: 0.05%
     Dates: start: 20151002
  15. MONOMIL XL [Concomitant]
     Dosage: 60 MG, QD
     Dates: start: 20151002
  16. CITALOPRAM [Concomitant]
     Active Substance: CITALOPRAM HYDROBROMIDE
     Dates: start: 20151015
  17. ALBUTEROL. [Concomitant]
     Active Substance: ALBUTEROL
     Indication: DYSPNOEA
     Dosage: 2 PUFFS 4 TIMES DAILY WHEN REQUIRED
     Route: 055
     Dates: start: 20151002
  18. BUPRENORPHINE. [Concomitant]
     Active Substance: BUPRENORPHINE
     Dosage: 5 MICROGRAMS/HOUR
     Dates: start: 20150914
  19. DERMOL (BENZALKONIUM CHLORIDE (+) CHLORHEXIDINE HYDROCHLORIDE (+) ISOP [Concomitant]
     Dosage: 500 LOTION APPLY TO SKIN OR USE A SOAP SUBSTITUTE
     Route: 061
     Dates: start: 20151002
  20. LEVOTHYROXINE SODIUM. [Concomitant]
     Active Substance: LEVOTHYROXINE SODIUM
     Dosage: EACH MORNING AT LEAST 30 MINUTES BEFORE BREAKFAST, CAFFEINE-CONTAINING DRINKS OR OTHER MEDICATION
     Route: 065
     Dates: start: 20151002

REACTIONS (2)
  - Local swelling [Not Recovered/Not Resolved]
  - Swelling face [Not Recovered/Not Resolved]

NARRATIVE: CASE EVENT DATE: 20151021
